FAERS Safety Report 4617878-9 (Version None)
Quarter: 2005Q1

REPORT INFORMATION
  Report Type: 
  Country: None (occurrence: None)
  Receive Date: 20050324
  Receipt Date: 20041202
  Transmission Date: 20050727
  Serious: Yes (Hospitalization, Other)
  Sender: FDA-Public Use
  Company Number: ES-NOVOPROD-240896

PATIENT
  Age: 5 Year
  Sex: Female
  Weight: 18 kg

DRUGS (2)
  1. NORDITROPIN [Suspect]
     Indication: SMALL FOR DATES BABY
     Dosage: .6 MG, QD
     Route: 058
     Dates: start: 20031016, end: 20040914
  2. NORDITROPIN [Suspect]
     Dosage: .6 MG, QD
     Route: 058
     Dates: start: 20040926

REACTIONS (9)
  - ARTHROPATHY [None]
  - DEHYDRATION [None]
  - DIARRHOEA [None]
  - GAIT DISTURBANCE [None]
  - GASTROENTERITIS [None]
  - OSTEOCHONDROSIS [None]
  - PYREXIA [None]
  - VIRAL INFECTION [None]
  - WEIGHT DECREASED [None]
